FAERS Safety Report 17988270 (Version 1)
Quarter: 2020Q3

REPORT INFORMATION
  Report Type: Spontaneous
  Country: US (occurrence: US)
  Receive Date: 20200706
  Receipt Date: 20200706
  Transmission Date: 20201103
  Serious: Yes (Hospitalization)
  Sender: FDA-Public Use
  Company Number: None

PATIENT
  Age: 57 Year
  Sex: Male

DRUGS (5)
  1. VITAMIN D [Concomitant]
     Active Substance: VITAMIN D NOS
  2. ANASTRAZOLE [Concomitant]
     Active Substance: ANASTROZOLE
  3. PANTOPRAZOLE [Concomitant]
     Active Substance: PANTOPRAZOLE
  4. TYKERB [Suspect]
     Active Substance: LAPATINIB DITOSYLATE
     Indication: BREAST CANCER
     Dates: start: 20181015, end: 20200701
  5. VITAMIN B [Concomitant]
     Active Substance: VITAMIN B

REACTIONS (1)
  - Disease progression [None]

NARRATIVE: CASE EVENT DATE: 20200701
